FAERS Safety Report 8990999 (Version 1)
Quarter: 2012Q4

REPORT INFORMATION
  Report Type: Spontaneous
  Country: CN (occurrence: None)
  Receive Date: 20121220
  Receipt Date: 20121220
  Transmission Date: 20130627
  Serious: Yes (Other)
  Sender: FDA-Public Use
  Company Number: VAL_01201_2012

PATIENT
  Age: 56 Year
  Sex: Female
  Weight: 40 kg

DRUGS (1)
  1. BENAZEPRIL [Suspect]
     Indication: HYPERTENSION
     Dosage: (1 DF)
     Route: 048
     Dates: start: 20080714, end: 20090731

REACTIONS (2)
  - Cough [None]
  - Diabetes mellitus [None]
